FAERS Safety Report 6517766-7 (Version None)
Quarter: 2009Q4

REPORT INFORMATION
  Report Type: 
  Country: None (occurrence: None)
  Receive Date: 20091218
  Receipt Date: 20091203
  Transmission Date: 20100525
  Serious: Yes (Hospitalization, Other)
  Sender: FDA-Public Use
  Company Number: 2009-198567-NL

PATIENT
  Age: 21 Year
  Sex: Female
  Weight: 69.4003 kg

DRUGS (3)
  1. NUVARING [Suspect]
     Indication: CONTRACEPTION
     Dates: start: 20070122, end: 20080818
  2. CEPHALEXIN [Concomitant]
  3. AMITRIPTYLENE [Concomitant]

REACTIONS (5)
  - CULTURE URINE POSITIVE [None]
  - ESCHERICHIA INFECTION [None]
  - HEADACHE [None]
  - PARAESTHESIA [None]
  - PULMONARY EMBOLISM [None]
